FAERS Safety Report 8920156 (Version 1)
Quarter: 2012Q4

REPORT INFORMATION
  Report Type: 
  Country: ES (occurrence: ES)
  Receive Date: 20121122
  Receipt Date: 20121122
  Transmission Date: 20130627
  Serious: Yes (Disabling)
  Sender: FDA-Public Use
  Company Number: PHHY2012ES083440

PATIENT
  Sex: Female

DRUGS (6)
  1. EVEROLIMUS [Suspect]
     Indication: BREAST CANCER
     Dosage: 10 mg, per day
     Route: 048
     Dates: start: 201207, end: 20120806
  2. EVEROLIMUS [Suspect]
     Dosage: 5 mg, per day
     Dates: start: 20120809, end: 20120920
  3. ANACERVIX [Concomitant]
  4. VITALUX [Concomitant]
  5. BETAGAN [Concomitant]
  6. AUXINA [Concomitant]

REACTIONS (7)
  - Toxic skin eruption [Recovering/Resolving]
  - Skin exfoliation [Recovering/Resolving]
  - Dry skin [Recovering/Resolving]
  - Pruritus [Recovering/Resolving]
  - Skin discolouration [Recovering/Resolving]
  - Rash [Recovering/Resolving]
  - Skin lesion [Recovering/Resolving]
